FAERS Safety Report 7545568-1 (Version None)
Quarter: 2011Q2

REPORT INFORMATION
  Report Type: 
  Country: None (occurrence: None)
  Receive Date: 20110613
  Receipt Date: 20110613
  Transmission Date: 20111010
  Serious: No
  Sender: FDA-Public Use
  Company Number: None

PATIENT
  Sex: Female

DRUGS (1)
  1. ENBREL [Suspect]
     Indication: RHEUMATOID ARTHRITIS
     Dosage: 25MG QW SQ
     Route: 058
     Dates: start: 20110204, end: 20110528

REACTIONS (8)
  - NAUSEA [None]
  - INJECTION SITE ERYTHEMA [None]
  - INJECTION SITE SWELLING [None]
  - DIZZINESS [None]
  - VASCULITIS [None]
  - INJECTION SITE PRURITUS [None]
  - HEADACHE [None]
  - CHEST PAIN [None]
